FAERS Safety Report 5862975-3 (Version None)
Quarter: 2008Q3

REPORT INFORMATION
  Report Type: 
  Country: None (occurrence: None)
  Receive Date: 20080828
  Receipt Date: 20080818
  Transmission Date: 20090109
  Serious: Yes (Other)
  Sender: FDA-Public Use
  Company Number: B0533161A

PATIENT
  Age: 29 Year
  Sex: Male

DRUGS (7)
  1. SEROXAT [Suspect]
     Route: 065
     Dates: start: 20030521
  2. CIPRALEX [Concomitant]
     Route: 065
     Dates: start: 20060223, end: 20060701
  3. DIAZEPAM [Concomitant]
     Dosage: 2MG AS REQUIRED
     Route: 065
     Dates: start: 20051007
  4. HERBAL REMEDY [Concomitant]
     Dates: start: 20050901
  5. FLUOXETINE [Concomitant]
     Dosage: 20MG PER DAY
     Dates: start: 20080601
  6. ANTIHISTAMINE [Concomitant]
     Indication: RASH
     Dates: start: 20040201
  7. FINASTERIDE [Concomitant]
     Dates: start: 20070605

REACTIONS (29)
  - AGGRESSION [None]
  - ANHEDONIA [None]
  - ANXIETY [None]
  - APATHY [None]
  - BALANCE DISORDER [None]
  - CONDITION AGGRAVATED [None]
  - CONFUSIONAL STATE [None]
  - DECREASED APPETITE [None]
  - DEPRESSED MOOD [None]
  - DEREALISATION [None]
  - DISTURBANCE IN ATTENTION [None]
  - DIZZINESS [None]
  - DRUG WITHDRAWAL SYNDROME [None]
  - FATIGUE [None]
  - HEARING IMPAIRED [None]
  - HYPERHIDROSIS [None]
  - LOSS OF LIBIDO [None]
  - MEMORY IMPAIRMENT [None]
  - MYALGIA [None]
  - MYODESOPSIA [None]
  - NIGHTMARE [None]
  - PALPITATIONS [None]
  - PHOTOSENSITIVITY REACTION [None]
  - SUICIDAL IDEATION [None]
  - TEARFULNESS [None]
  - THOUGHT INSERTION [None]
  - VERTIGO [None]
  - VISION BLURRED [None]
  - VISUAL IMPAIRMENT [None]
